FAERS Safety Report 11337250 (Version 1)
Quarter: 2015Q3

REPORT INFORMATION
  Report Type: Spontaneous
  Country: US (occurrence: US)
  Receive Date: 20150803
  Receipt Date: 20150803
  Transmission Date: 20151125
  Serious: No
  Sender: FDA-Public Use
  Company Number: US-ELI_LILLY_AND_COMPANY-US200608003318

PATIENT
  Sex: Female
  Weight: 112.2 kg

DRUGS (1)
  1. ZYPREXA [Suspect]
     Active Substance: OLANZAPINE
     Indication: BIPOLAR DISORDER
     Dosage: 5 MG, UNK
     Route: 048
     Dates: start: 2000, end: 2005

REACTIONS (7)
  - Blood triglycerides increased [Unknown]
  - Obesity [Unknown]
  - Cholelithiasis [Unknown]
  - Hyperphagia [Unknown]
  - Blood cholesterol abnormal [Unknown]
  - Diabetes mellitus [Not Recovered/Not Resolved]
  - Biliary tract disorder [Unknown]

NARRATIVE: CASE EVENT DATE: 2001
